FAERS Safety Report 7110956-4 (Version None)
Quarter: 2010Q4

REPORT INFORMATION
  Report Type: 
  Country: None (occurrence: None)
  Receive Date: 20101118
  Receipt Date: 20091014
  Transmission Date: 20110411
  Serious: No
  Sender: FDA-Public Use
  Company Number: US-TEVA-212378USA

PATIENT
  Sex: Female

DRUGS (6)
  1. ALBUTEROL SULFATE AUTOHALER [Suspect]
     Route: 055
     Dates: start: 20071201
  2. IPRATROPIUM BROMIDE [Concomitant]
  3. BECLOMETASONE DIPROPIONATE [Concomitant]
  4. LOVASTATIN [Concomitant]
  5. VERAPAMIL [Concomitant]
  6. PRINZIDE                           /00977901/ [Concomitant]

REACTIONS (2)
  - DRUG INEFFECTIVE [None]
  - THROAT IRRITATION [None]
